FAERS Safety Report 6522656-X (Version None)
Quarter: 2009Q4

REPORT INFORMATION
  Report Type: 
  Country: None (occurrence: None)
  Receive Date: 20091224
  Receipt Date: 20091214
  Transmission Date: 20100525
  Serious: Yes (Hospitalization, Other)
  Sender: FDA-Public Use
  Company Number: 1000010924

PATIENT
  Age: 71 Year
  Sex: Female

DRUGS (8)
  1. ESCITALOPRAM [Suspect]
     Dosage: (15 MG) ,ORAL
     Route: 048
     Dates: start: 20081007
  2. TOPAMAX [Suspect]
     Dosage: (100 MG) ,ORAL
     Route: 048
     Dates: start: 20060426, end: 20081016
  3. AMLODIPINE BESYLATE [Suspect]
     Dosage: (5 MG) ,ORAL
     Route: 048
     Dates: start: 20080909
  4. PANTOPRAZOLE SODIUM [Concomitant]
  5. LORAMET [Concomitant]
  6. SINTROM [Concomitant]
  7. SUTRIL [Concomitant]
  8. TRANXILIUM [Concomitant]

REACTIONS (4)
  - DECREASED APPETITE [None]
  - DIZZINESS [None]
  - FATIGUE [None]
  - PULMONARY EMBOLISM [None]
